APPROVED DRUG PRODUCT: CLINDAMYCIN PHOSPHATE
Active Ingredient: CLINDAMYCIN PHOSPHATE
Strength: EQ 150MG BASE/ML
Dosage Form/Route: INJECTABLE;INJECTION
Application: A062928 | Product #001
Applicant: IGI LABORATORIES INC
Approved: Feb 13, 1989 | RLD: No | RS: No | Type: DISCN